FAERS Safety Report 9276340 (Version 1)
Quarter: 2012Q4

REPORT INFORMATION
  Report Type: Spontaneous
  Country: US (occurrence: None)
  Receive Date: 20121109
  Receipt Date: 20121109
  Transmission Date: 20130627
  Serious: Yes (Death)
  Sender: FDA-Public Use
  Company Number: 2012S1000869

PATIENT
  Age: 78 Year
  Sex: Male
  Weight: 77.5 kg

DRUGS (1)
  1. CUBICIN [Suspect]
     Indication: URINARY TRACT INFECTION
     Dates: start: 20080109, end: 20080123

REACTIONS (1)
  - White blood cell count increased [None]
